FAERS Safety Report 4884540-7 (Version None)
Quarter: 2005Q4

REPORT INFORMATION
  Report Type: 
  Country: None (occurrence: None)
  Receive Date: 20051201
  Receipt Date: 20050913
  Transmission Date: 20060501
  Serious: No
  Sender: FDA-Public Use
  Company Number: 2005PV002075

PATIENT
  Sex: Female

DRUGS (2)
  1. BYETTA [Suspect]
     Dosage: SEE IMAGE
     Route: 058
  2. INSULIN [Concomitant]

REACTIONS (3)
  - DEPRESSION [None]
  - FUNGAL SKIN INFECTION [None]
  - URTICARIA [None]
